FAERS Safety Report 9433578 (Version 2)
Quarter: 2013Q3

REPORT INFORMATION
  Report Type: Report from Study
  Country: US (occurrence: US)
  Receive Date: 20130731
  Receipt Date: 20130809
  Transmission Date: 20140515
  Serious: Yes (Hospitalization)
  Sender: FDA-Public Use
  Company Number: PHEH2013US016069

PATIENT
  Sex: Female

DRUGS (2)
  1. EXTAVIA [Suspect]
     Indication: MULTIPLE SCLEROSIS
     Dosage: UNK UKN, UNK
     Dates: start: 20101020, end: 20130517
  2. EXTAVIA [Suspect]
     Dosage: UNK UKN, UNK

REACTIONS (6)
  - Road traffic accident [Unknown]
  - Limb crushing injury [Unknown]
  - Radius fracture [Unknown]
  - Fat tissue decreased [Unknown]
  - Injection site discolouration [Unknown]
  - Injection site reaction [Unknown]
